FAERS Safety Report 11581861 (Version 1)
Quarter: 2015Q4

REPORT INFORMATION
  Report Type: Spontaneous
  Country: US (occurrence: US)
  Receive Date: 20151001
  Receipt Date: 20151001
  Transmission Date: 20160304
  Serious: No
  Sender: FDA-Public Use
  Company Number: US-ROCHE-672850

PATIENT
  Age: 27 Year
  Sex: Male

DRUGS (3)
  1. COPEGUS [Suspect]
     Active Substance: RIBAVIRIN
     Indication: HEPATITIS C
     Dosage: DIVIDED DOSES
     Route: 065
  2. LOMOTIL [Concomitant]
     Active Substance: ATROPINE SULFATE\DIPHENOXYLATE HYDROCHLORIDE
     Indication: COLITIS ULCERATIVE
     Route: 065
  3. PEGASYS [Suspect]
     Active Substance: PEGINTERFERON ALFA-2A
     Indication: HEPATITIS C
     Dosage: FORM: PRE-FILLED SYRINGE (PFS)
     Route: 065

REACTIONS (8)
  - Oropharyngeal pain [Not Recovered/Not Resolved]
  - Hypersomnia [Not Recovered/Not Resolved]
  - Clostridium difficile infection [Unknown]
  - Nausea [Not Recovered/Not Resolved]
  - Crying [Not Recovered/Not Resolved]
  - Sinusitis [Not Recovered/Not Resolved]
  - Arthralgia [Not Recovered/Not Resolved]
  - Loss of consciousness [Not Recovered/Not Resolved]

NARRATIVE: CASE EVENT DATE: 200906
